FAERS Safety Report 4891290-X (Version None)
Quarter: 2006Q1

REPORT INFORMATION
  Report Type: 
  Country: None (occurrence: None)
  Receive Date: 20060123
  Receipt Date: 20060111
  Transmission Date: 20060701
  Serious: Yes (Death)
  Sender: FDA-Public Use
  Company Number: 2006-DE-00137GD

PATIENT
  Age: 30 Year
  Sex: Male

DRUGS (2)
  1. METHADONE (METHADONE) [Suspect]
  2. BENZODIAZEPINES (BENZODIAZEPINE DERIVATIVES) [Suspect]

REACTIONS (1)
  - DRUG TOXICITY [None]
